FAERS Safety Report 12649656 (Version 2)
Quarter: 2016Q3

REPORT INFORMATION
  Report Type: Spontaneous
  Country: GB (occurrence: GB)
  Receive Date: 20160812
  Receipt Date: 20160824
  Transmission Date: 20161109
  Serious: Yes (Other)
  Sender: FDA-Public Use
  Company Number: PHHY2016GB109123

PATIENT
  Age: 52 Year
  Sex: Female
  Weight: 56.7 kg

DRUGS (6)
  1. LUBIPROSTONE [Concomitant]
     Active Substance: LUBIPROSTONE
     Indication: PRODUCT USED FOR UNKNOWN INDICATION
     Route: 065
  2. NOVORAPID [Concomitant]
     Active Substance: INSULIN ASPART
     Indication: PRODUCT USED FOR UNKNOWN INDICATION
     Route: 065
  3. LEVEMIR [Concomitant]
     Active Substance: INSULIN DETEMIR
     Indication: PRODUCT USED FOR UNKNOWN INDICATION
     Route: 065
  4. OMEPRAZOLE. [Suspect]
     Active Substance: OMEPRAZOLE
     Indication: GASTRITIS EROSIVE
     Dosage: 20 MG, QD
     Route: 048
     Dates: start: 20160624, end: 20160628
  5. RANITIDINE. [Suspect]
     Active Substance: RANITIDINE
     Indication: GASTRITIS EROSIVE
     Dosage: 75 MG, UNK
     Route: 048
     Dates: end: 20160704
  6. LETROZOLE. [Concomitant]
     Active Substance: LETROZOLE
     Indication: PRODUCT USED FOR UNKNOWN INDICATION
     Route: 065

REACTIONS (4)
  - Blood glucose increased [Recovering/Resolving]
  - Hypoglycaemia [Unknown]
  - Myalgia [Recovering/Resolving]
  - Pruritus [Recovered/Resolved]

NARRATIVE: CASE EVENT DATE: 20160625
